FAERS Safety Report 6538918-6 (Version None)
Quarter: 2010Q1

REPORT INFORMATION
  Report Type: 
  Country: None (occurrence: None)
  Receive Date: 20100115
  Receipt Date: 20100112
  Transmission Date: 20100710
  Serious: Yes (Death, Hospitalization)
  Sender: FDA-Public Use
  Company Number: GB-ROCHE-482741

PATIENT
  Sex: Male
  Weight: 62 kg

DRUGS (8)
  1. XELODA [Suspect]
     Indication: COLON CANCER
     Dosage: DRUG WITHDRAWN
     Route: 048
     Dates: start: 20061221, end: 20070131
  2. WARFARIN [Concomitant]
  3. ATORVASTATIN [Concomitant]
  4. TAMSULOSIN HCL [Concomitant]
  5. AMIODARONE HCL [Concomitant]
  6. FRUSEMIDE [Concomitant]
  7. GLICLAZIDE [Concomitant]
  8. OMEPRAZOLE [Concomitant]

REACTIONS (3)
  - DIARRHOEA [None]
  - RENAL FAILURE [None]
  - VOMITING [None]
